FAERS Safety Report 4444628-1 (Version None)
Quarter: 2004Q3

REPORT INFORMATION
  Report Type: 
  Country: None (occurrence: None)
  Receive Date: 20040902
  Receipt Date: 20040826
  Transmission Date: 20050211
  Serious: Yes (Disabling, Other)
  Sender: FDA-Public Use
  Company Number: 2004010780

PATIENT
  Age: 69 Year
  Sex: Male
  Weight: 95.2554 kg

DRUGS (5)
  1. LIPITOR [Suspect]
     Indication: BLOOD CHOLESTEROL INCREASED
     Dosage: 10 MG (DAILY), UNKNOWN (SEE IMAGE)
     Route: 065
     Dates: start: 20011016, end: 20020301
  2. HYZAAR [Suspect]
     Indication: HYPERTENSION
     Dosage: UNKNOWN (DAILY); ORAL (SEE IMAGE)
     Route: 048
     Dates: start: 19980807
  3. VICODIN [Concomitant]
  4. ACETYLSALICYLIC ACID [Concomitant]
  5. AMLODIPINE BESYLATE [Concomitant]

REACTIONS (24)
  - ALDOLASE INCREASED [None]
  - ARTHRALGIA [None]
  - ASTHENIA [None]
  - BLOOD CHOLESTEROL INCREASED [None]
  - DIFFICULTY IN WALKING [None]
  - EMOTIONAL DISTRESS [None]
  - FATIGUE [None]
  - FEELING COLD [None]
  - HEAD INJURY [None]
  - INSOMNIA [None]
  - JOINT CREPITATION [None]
  - JOINT RANGE OF MOTION DECREASED [None]
  - LOW DENSITY LIPOPROTEIN INCREASED [None]
  - MUSCLE ATROPHY [None]
  - MYOPATHY [None]
  - MYOSITIS [None]
  - NECK INJURY [None]
  - NERVOUSNESS [None]
  - NEURALGIA [None]
  - NEUROPATHY [None]
  - PAIN IN EXTREMITY [None]
  - POLYTRAUMATISM [None]
  - PROSTATIC SPECIFIC ANTIGEN INCREASED [None]
  - TENDERNESS [None]
